FAERS Safety Report 6576199-8 (Version None)
Quarter: 2010Q1

REPORT INFORMATION
  Report Type: 
  Country: None (occurrence: None)
  Receive Date: 20100209
  Receipt Date: 20100127
  Transmission Date: 20100710
  Serious: Yes (Death, Hospitalization)
  Sender: FDA-Public Use
  Company Number: AT-AMGEN-US389568

PATIENT
  Sex: Female

DRUGS (3)
  1. ENBREL [Suspect]
     Indication: RHEUMATOID ARTHRITIS
     Route: 058
     Dates: start: 20090401
  2. FOLSAN [Concomitant]
  3. EBETREXAT [Concomitant]
     Indication: RHEUMATOID ARTHRITIS

REACTIONS (3)
  - HEPATIC FAILURE [None]
  - ILEUS [None]
  - PERITONITIS [None]
